FAERS Safety Report 17104756 (Version 2)
Quarter: 2020Q2

REPORT INFORMATION
  Report Type: Spontaneous
  Country: US (occurrence: US)
  Receive Date: 20191203
  Receipt Date: 20200402
  Transmission Date: 20200713
  Serious: No
  Sender: FDA-Public Use
  Company Number: US-UCBSA-2018005428

PATIENT
  Sex: Female

DRUGS (2)
  1. NEUPRO [Suspect]
     Active Substance: ROTIGOTINE
     Indication: PRODUCT USED FOR UNKNOWN INDICATION
     Dosage: UNK DOSE, TAKING DOUBLE PATCHES
  2. NEUPRO [Suspect]
     Active Substance: ROTIGOTINE
     Dosage: 8 MG

REACTIONS (2)
  - Incorrect dose administered [Unknown]
  - Application site burn [Unknown]
